FAERS Safety Report 20698463 (Version 1)
Quarter: 2022Q2

REPORT INFORMATION
  Report Type: Spontaneous
  Country: US (occurrence: US)
  Receive Date: 20220412
  Receipt Date: 20220412
  Transmission Date: 20220721
  Serious: No
  Sender: FDA-Public Use
  Company Number: US-BION-010315

PATIENT
  Sex: Female

DRUGS (1)
  1. ALEVE [Suspect]
     Active Substance: NAPROXEN SODIUM
     Indication: Product used for unknown indication
     Route: 048
     Dates: start: 202111, end: 20220213

REACTIONS (4)
  - Illness [Unknown]
  - Rash erythematous [Unknown]
  - Pruritus [Unknown]
  - Expired product administered [Not Recovered/Not Resolved]
